FAERS Safety Report 5083630-6 (Version None)
Quarter: 2006Q3

REPORT INFORMATION
  Report Type: 
  Country: None (occurrence: None)
  Receive Date: 20060818
  Receipt Date: 20060816
  Transmission Date: 20061208
  Serious: Yes (Other)
  Sender: FDA-Public Use
  Company Number: DE-MERCK-0608DEU00102

PATIENT
  Age: 9 Month
  Sex: Male
  Weight: 11 kg

DRUGS (1)
  1. SINGULAIR [Suspect]
     Indication: BRONCHITIS CHRONIC
     Route: 048
     Dates: start: 20060407, end: 20060408

REACTIONS (3)
  - ATONIC SEIZURES [None]
  - LEUKOCYTOSIS [None]
  - PLATELET COUNT INCREASED [None]
